FAERS Safety Report 7429585-8 (Version None)
Quarter: 2011Q2

REPORT INFORMATION
  Report Type: 
  Country: None (occurrence: None)
  Receive Date: 20110421
  Receipt Date: 20110414
  Transmission Date: 20111010
  Serious: Yes (Life-Threatening)
  Sender: FDA-Public Use
  Company Number: B0589056A

PATIENT
  Sex: Male

DRUGS (16)
  1. NORVIR [Suspect]
     Indication: ACQUIRED IMMUNODEFICIENCY SYNDROME
     Dosage: 200MG PER DAY
     Route: 048
     Dates: start: 20061111, end: 20090216
  2. ZITHROMAX [Concomitant]
     Indication: MYCOBACTERIUM AVIUM COMPLEX INFECTION
     Route: 048
     Dates: start: 20090605
  3. LEXIVA [Suspect]
     Dosage: 2800MG PER DAY
     Route: 048
     Dates: start: 20090625, end: 20091112
  4. ISONIAZID [Concomitant]
     Indication: TUBERCULOSIS
     Route: 065
     Dates: start: 20090623
  5. LEXIVA [Suspect]
     Indication: ACQUIRED IMMUNODEFICIENCY SYNDROME
     Dosage: 1400MG PER DAY
     Route: 048
     Dates: start: 20061111, end: 20090216
  6. PYRAZINAMIDE [Concomitant]
     Indication: TUBERCULOSIS
     Route: 048
     Dates: start: 20090907
  7. LEVEMIR [Concomitant]
     Indication: DIABETES MELLITUS
     Route: 058
     Dates: start: 20090623
  8. EPZICOM [Concomitant]
     Indication: ACQUIRED IMMUNODEFICIENCY SYNDROME
     Route: 048
     Dates: start: 20090625
  9. ESANBUTOL [Concomitant]
     Indication: TUBERCULOSIS
     Route: 048
     Dates: start: 20090623
  10. TRUVADA [Suspect]
     Indication: HIV INFECTION
     Dosage: 1TAB PER DAY
     Route: 048
     Dates: start: 20061111, end: 20090216
  11. MYCOBUTIN [Concomitant]
     Dosage: 150MG PER DAY
     Route: 048
     Dates: start: 20090623
  12. RETROVIR [Suspect]
     Indication: HIV INFECTION
     Dosage: 400MG PER DAY
     Route: 048
     Dates: start: 20090217, end: 20090624
  13. STOCRIN [Suspect]
     Indication: ACQUIRED IMMUNODEFICIENCY SYNDROME
     Dosage: 600MG PER DAY
     Route: 048
     Dates: start: 20090217, end: 20090624
  14. NOVORAPID [Concomitant]
     Indication: DIABETES MELLITUS
     Route: 058
     Dates: start: 20090623
  15. ISENTRESS [Concomitant]
     Indication: HIV INFECTION
     Route: 048
     Dates: start: 20090217
  16. BAKTAR [Concomitant]
     Indication: ANTIFUNGAL PROPHYLAXIS
     Dosage: 1U PER DAY
     Route: 048
     Dates: start: 20080711

REACTIONS (3)
  - LYMPHOCYTE COUNT DECREASED [None]
  - LYMPHOMA [None]
  - CD4 LYMPHOCYTES DECREASED [None]
